FAERS Safety Report 10181885 (Version 1)
Quarter: 2014Q2

REPORT INFORMATION
  Report Type: Spontaneous
  Country: US (occurrence: US)
  Receive Date: 20140519
  Receipt Date: 20140519
  Transmission Date: 20141212
  Serious: No
  Sender: FDA-Public Use
  Company Number: US-ASTRAZENECA-2014SE06883

PATIENT
  Sex: Male

DRUGS (6)
  1. ATACAND [Suspect]
     Route: 048
  2. ATACAND [Suspect]
     Route: 048
  3. ATACAND [Suspect]
     Dosage: SPLITTING TABLETS IN HALF AND TAKING TWO DAILY DOSES
     Route: 048
  4. SOTALOL [Concomitant]
     Dosage: NOT REPORTED UNK
  5. ATENOLOL [Concomitant]
     Dosage: NOT REPORTED UNK
  6. OTHER MEDICATION [Concomitant]
     Dosage: NOT REPORTED UNK

REACTIONS (3)
  - Fatigue [Unknown]
  - Dizziness [Unknown]
  - Off label use [Recovered/Resolved]
